FAERS Safety Report 4640042-4 (Version None)
Quarter: 2005Q2

REPORT INFORMATION
  Report Type: 
  Country: None (occurrence: None)
  Receive Date: 20050418
  Receipt Date: 20050405
  Transmission Date: 20051028
  Serious: No
  Sender: FDA-Public Use
  Company Number: 04-000186

PATIENT
  Age: 53 Year
  Sex: Female
  Weight: 61.2 kg

DRUGS (1)
  1. FEMRING [Suspect]
     Indication: HORMONE REPLACEMENT THERAPY
     Dosage: QD, VAGINAL
     Route: 067
     Dates: start: 20031217

REACTIONS (3)
  - ABDOMINAL PAIN UPPER [None]
  - BREAST CANCER FEMALE [None]
  - MUSCLE SPASMS [None]
